FAERS Safety Report 7046035-4 (Version None)
Quarter: 2010Q4

REPORT INFORMATION
  Report Type: 
  Country: None (occurrence: None)
  Receive Date: 20101014
  Receipt Date: 20101006
  Transmission Date: 20110411
  Serious: Yes (Hospitalization)
  Sender: FDA-Public Use
  Company Number: US-ABBOTT-10P-163-0640911-00

PATIENT
  Sex: Female
  Weight: 97.61 kg

DRUGS (8)
  1. HUMIRA [Suspect]
     Indication: PSORIATIC ARTHROPATHY
     Route: 050
     Dates: start: 20091119, end: 20100713
  2. LEXAPRO [Suspect]
     Indication: DEPRESSION
     Route: 048
     Dates: start: 20091113, end: 20100713
  3. TRAZODONE HCL [Concomitant]
     Indication: PRODUCT USED FOR UNKNOWN INDICATION
     Dosage: 4 IN ONE DAY AS NEEDED
     Route: 048
     Dates: start: 20100301, end: 20100713
  4. ENBREL [Concomitant]
     Indication: PSORIATIC ARTHROPATHY
     Route: 050
     Dates: start: 20091113, end: 20091118
  5. MUCINEX [Concomitant]
     Indication: NASOPHARYNGITIS
     Dosage: 1-2 PILLS QD
     Route: 048
     Dates: start: 20100201, end: 20100228
  6. PRENATAL VITAMINS [Concomitant]
     Indication: PRODUCT USED FOR UNKNOWN INDICATION
     Dosage: 1 PILL QD
     Dates: start: 20091113
  7. CAFFEINE [Concomitant]
     Indication: PRODUCT USED FOR UNKNOWN INDICATION
     Dosage: 2.5 SERVINGS MOUNTAIN DEW DAILY
     Route: 048
     Dates: start: 20091203
  8. CAFFEINE [Concomitant]
     Dosage: 5.67 SERVINGS MOUNTAIN DEW DAILY
     Route: 048
     Dates: start: 20091113, end: 20091202

REACTIONS (6)
  - CAESAREAN SECTION [None]
  - DYSPEPSIA [None]
  - FALL [None]
  - FUNGAL INFECTION [None]
  - RESPIRATORY TRACT INFECTION [None]
  - URINARY TRACT INFECTION [None]
